FAERS Safety Report 4787311-5 (Version None)
Quarter: 2005Q3

REPORT INFORMATION
  Report Type: 
  Country: None (occurrence: None)
  Receive Date: 20050926
  Receipt Date: 20050818
  Transmission Date: 20060218
  Serious: No
  Sender: FDA-Public Use
  Company Number: 216060

PATIENT
  Sex: Male

DRUGS (4)
  1. AVASTIN [Suspect]
  2. ELOXATIN [Suspect]
  3. CALCIUM (CALCIUM NOS) [Concomitant]
  4. MAGNESIUM SULFATE [Concomitant]

REACTIONS (3)
  - COUGH [None]
  - PARAESTHESIA ORAL [None]
  - URTICARIA [None]
